FAERS Safety Report 8308446-6 (Version None)
Quarter: 2012Q1

REPORT INFORMATION
  Report Type: 
  Country: None (occurrence: None)
  Receive Date: 20120327
  Receipt Date: 20091110
  Transmission Date: 20120608
  Serious: Yes (Hospitalization)
  Sender: FDA-Public Use
  Company Number: PHEH2009US15498

PATIENT
  Age: 50 Year
  Sex: Female

DRUGS (1)
  1. GLEEVEC [Suspect]
     Dosage: 400 MG, QD, ORAL
     Route: 048
     Dates: start: 20090608

REACTIONS (2)
  - GASTROINTESTINAL PERFORATION [None]
  - GASTROINTESTINAL HAEMORRHAGE [None]
